FAERS Safety Report 6221258-2 (Version None)
Quarter: 2009Q2

REPORT INFORMATION
  Report Type: 
  Country: None (occurrence: None)
  Receive Date: 20090610
  Receipt Date: 20090604
  Transmission Date: 20091009
  Serious: Yes (Hospitalization)
  Sender: FDA-Public Use
  Company Number: US-MERCK-0906USA00860

PATIENT
  Age: 76 Year
  Sex: Female

DRUGS (1)
  1. CANCIDAS [Suspect]
     Indication: ENTERITIS INFECTIOUS
     Route: 042
     Dates: start: 20090501

REACTIONS (4)
  - BRAIN OEDEMA [None]
  - DRUG ADMINISTRATION ERROR [None]
  - EYE DISORDER [None]
  - PAIN IN EXTREMITY [None]
